FAERS Safety Report 5783713-9 (Version None)
Quarter: 2008Q2

REPORT INFORMATION
  Report Type: 
  Country: None (occurrence: None)
  Receive Date: 20080605
  Receipt Date: 20080324
  Transmission Date: 20081010
  Serious: No
  Sender: FDA-Public Use
  Company Number: A0717038A

PATIENT
  Age: 21 Year
  Sex: Female
  Weight: 85 kg

DRUGS (1)
  1. ALLI [Suspect]
     Dates: start: 20080221

REACTIONS (4)
  - FLATULENCE [None]
  - MENSTRUATION IRREGULAR [None]
  - METRORRHAGIA [None]
  - STEATORRHOEA [None]
